APPROVED DRUG PRODUCT: OXYCODONE AND ACETAMINOPHEN
Active Ingredient: ACETAMINOPHEN; OXYCODONE HYDROCHLORIDE
Strength: 650MG;10MG
Dosage Form/Route: TABLET;ORAL
Application: A040789 | Product #002
Applicant: AMNEAL PHARMACEUTICALS NY LLC
Approved: Nov 27, 2007 | RLD: No | RS: No | Type: DISCN